FAERS Safety Report 14962549 (Version 3)
Quarter: 2020Q4

REPORT INFORMATION
  Report Type: Spontaneous
  Country: US (occurrence: US)
  Receive Date: 20180601
  Receipt Date: 20201221
  Transmission Date: 20210113
  Serious: No
  Sender: FDA-Public Use
  Company Number: US-PFIZER INC-2018225283

PATIENT
  Age: 63 Year
  Sex: Male
  Weight: 100.68 kg

DRUGS (1)
  1. GABAPENTIN. [Suspect]
     Active Substance: GABAPENTIN
     Dosage: UNK

REACTIONS (3)
  - Dizziness [Unknown]
  - Somnolence [Unknown]
  - Drug hypersensitivity [Unknown]
